FAERS Safety Report 8008983-8 (Version None)
Quarter: 2011Q4

REPORT INFORMATION
  Report Type: 
  Country: None (occurrence: None)
  Receive Date: 20111227
  Receipt Date: 20111222
  Transmission Date: 20120403
  Serious: No
  Sender: FDA-Public Use
  Company Number: US-PFIZER INC-2011312643

PATIENT
  Sex: Female
  Weight: 60.317 kg

DRUGS (5)
  1. EFFEXOR XR [Suspect]
     Indication: DISTURBANCE IN ATTENTION
     Dosage: 75 MG, DAILY
     Route: 048
  2. EFFEXOR XR [Suspect]
     Dosage: 150 MG, DAILY
     Route: 048
  3. EFFEXOR XR [Suspect]
     Dosage: 150MG IN THE MORNING AND 75MG IN THE NIGHT
     Route: 048
     Dates: start: 20100201, end: 20100401
  4. VENLAFAXINE HCL [Suspect]
     Indication: DISTURBANCE IN ATTENTION
     Dosage: UNK
     Dates: start: 20100101
  5. AMBIEN [Concomitant]
     Indication: SLEEP DISORDER
     Dosage: 5MG BY SPLITTING THE TABLET, AS NEEDED
     Route: 048

REACTIONS (2)
  - DRUG INEFFECTIVE [None]
  - ABDOMINAL PAIN UPPER [None]
